FAERS Safety Report 7338378-1 (Version None)
Quarter: 2011Q1

REPORT INFORMATION
  Report Type: 
  Country: None (occurrence: None)
  Receive Date: 20110308
  Receipt Date: 20110214
  Transmission Date: 20110831
  Serious: No
  Sender: FDA-Public Use
  Company Number: US-B.I. PHARMACEUTICALS,INC./RIDGEFIELD-2011-BP-05684BP

PATIENT
  Age: 62 Year
  Sex: Female

DRUGS (3)
  1. PLAVIX [Concomitant]
     Dates: end: 20110210
  2. PRADAXA [Suspect]
     Indication: ATRIAL FIBRILLATION
     Dosage: 300 MG
     Route: 048
     Dates: start: 20110209
  3. ASPIRIN [Concomitant]
     Dosage: 81 MG
     Dates: end: 20110210

REACTIONS (2)
  - VAGINAL HAEMORRHAGE [None]
  - MUSCLE SPASMS [None]
